FAERS Safety Report 11665307 (Version 2)
Quarter: 2016Q1

REPORT INFORMATION
  Report Type: Report from Study
  Country: CN (occurrence: CN)
  Receive Date: 20151027
  Receipt Date: 20160330
  Transmission Date: 20160525
  Serious: Yes (Hospitalization)
  Sender: FDA-Public Use
  Company Number: CN-OTSUKA-2015_012914

PATIENT
  Age: 58 Year
  Sex: Male

DRUGS (4)
  1. BLINDED *PLACEBO [Suspect]
     Active Substance: INVESTIGATIONAL PRODUCT
     Indication: HYPERCHOLESTEROLAEMIA
     Dosage: UNK
     Route: 048
     Dates: start: 20140430
  2. ATORVASTATIN [Suspect]
     Active Substance: ATORVASTATIN
     Indication: HYPERCHOLESTEROLAEMIA
     Dosage: 20 MG, QD (QN)
     Route: 048
     Dates: start: 20140430
  3. BLINDED CILOSTAZOL [Suspect]
     Active Substance: CILOSTAZOL
     Indication: HYPERCHOLESTEROLAEMIA
     Dosage: UNK
     Route: 048
     Dates: start: 20140430
  4. PROBUCOL [Suspect]
     Active Substance: PROBUCOL
     Indication: HYPERCHOLESTEROLAEMIA
     Dosage: 500 MG, BID
     Route: 048
     Dates: start: 20140430

REACTIONS (1)
  - Comminuted fracture [Recovered/Resolved]

NARRATIVE: CASE EVENT DATE: 20140514
